FAERS Safety Report 5849383-6 (Version None)
Quarter: 2008Q3

REPORT INFORMATION
  Report Type: 
  Country: None (occurrence: None)
  Receive Date: 20080815
  Receipt Date: 20080807
  Transmission Date: 20090109
  Serious: Yes (Hospitalization, Other)
  Sender: FDA-Public Use
  Company Number: A-US2007-16062

PATIENT
  Age: 64 Year
  Sex: Female
  Weight: 77.6 kg

DRUGS (17)
  1. TRACLEER [Suspect]
     Indication: PULMONARY HYPERTENSION
     Dosage: 125 MG, BID; 62.5 MG, BID, ORAL; 62.5 MG, QD, ORAL
     Route: 048
     Dates: start: 20070521
  2. TRACLEER [Suspect]
     Indication: PULMONARY HYPERTENSION
     Dosage: 125 MG, BID; 62.5 MG, BID, ORAL; 62.5 MG, QD, ORAL
     Route: 048
     Dates: start: 20080501
  3. PREDNISONE [Concomitant]
  4. NOVOLOG [Concomitant]
  5. LANTUS [Concomitant]
  6. SYNTHROID [Concomitant]
  7. CLONIDINE [Concomitant]
  8. CLONAZEPAM [Concomitant]
  9. NEXIUM [Concomitant]
  10. LASIX [Concomitant]
  11. POTASSIUM CHLORIDE [Concomitant]
  12. ZAROXOLYN [Concomitant]
  13. AMBIEN [Concomitant]
  14. DIOVAN [Concomitant]
  15. XOPENEX [Concomitant]
  16. MACROGOL (MACROGOL) [Concomitant]
  17. SPIRONOLACTONE [Concomitant]

REACTIONS (20)
  - ABDOMINAL PAIN UPPER [None]
  - BLISTER [None]
  - BLOOD POTASSIUM DECREASED [None]
  - CONSTIPATION [None]
  - COUGH [None]
  - DEHYDRATION [None]
  - DIARRHOEA [None]
  - DYSPNOEA EXERTIONAL [None]
  - EXCORIATION [None]
  - FAECALOMA [None]
  - ILEUS [None]
  - INSOMNIA [None]
  - LIVER FUNCTION TEST ABNORMAL [None]
  - NAUSEA [None]
  - OFF LABEL USE [None]
  - PALPITATIONS [None]
  - PRURITUS [None]
  - RASH [None]
  - RENAL FAILURE [None]
  - VOMITING [None]
